FAERS Safety Report 9301565 (Version 1)
Quarter: 2013Q2

REPORT INFORMATION
  Report Type: Spontaneous
  Country: US (occurrence: None)
  Receive Date: 20130520
  Receipt Date: 20130520
  Transmission Date: 20140414
  Serious: Yes (Life-Threatening, Other)
  Sender: FDA-Public Use
  Company Number: None

PATIENT
  Age: 50 Year
  Sex: Male
  Weight: 88.45 kg

DRUGS (1)
  1. VALSARTAN-HCTZ [Suspect]
     Indication: HYPERTENSION
     Dosage: 1 TABLET, DAILY, PO
     Route: 048
     Dates: start: 20130305, end: 20130517

REACTIONS (5)
  - Blood pressure increased [None]
  - Headache [None]
  - Product substitution issue [None]
  - Product quality issue [None]
  - Drug effect decreased [None]
